FAERS Safety Report 14244047 (Version 1)
Quarter: 2017Q4

REPORT INFORMATION
  Report Type: Spontaneous
  Country: BE (occurrence: BE)
  Receive Date: 20171201
  Receipt Date: 20171201
  Transmission Date: 20180321
  Serious: Yes (Other)
  Sender: FDA-Public Use
  Company Number: BE-FRESENIUS KABI-FK201710397

PATIENT
  Age: 69 Year
  Sex: Female
  Weight: 58 kg

DRUGS (6)
  1. CETRIZINE [Concomitant]
     Active Substance: CETIRIZINE HYDROCHLORIDE
     Indication: PRODUCT USED FOR UNKNOWN INDICATION
     Route: 065
  2. RANITIDINE. [Concomitant]
     Active Substance: RANITIDINE
     Indication: PRODUCT USED FOR UNKNOWN INDICATION
     Route: 042
  3. PACLITAXEL 6MG/ML CONCENTRATE FOR SOLUTION FOR INFUSION [Suspect]
     Active Substance: PACLITAXEL
     Indication: PRODUCT USED FOR UNKNOWN INDICATION
     Route: 042
  4. ALIZAPRIDE [Concomitant]
     Active Substance: ALIZAPRIDE
     Indication: PRODUCT USED FOR UNKNOWN INDICATION
     Route: 042
  5. TRASTUZUMAB. [Concomitant]
     Active Substance: TRASTUZUMAB
     Indication: PRODUCT USED FOR UNKNOWN INDICATION
     Route: 042
  6. DEXAMETHASONE. [Concomitant]
     Active Substance: DEXAMETHASONE
     Indication: PRODUCT USED FOR UNKNOWN INDICATION
     Route: 042

REACTIONS (3)
  - Hypotension [Unknown]
  - Skin lesion [Unknown]
  - Bronchospasm [Unknown]

NARRATIVE: CASE EVENT DATE: 201705
